FAERS Safety Report 14080009 (Version 2)
Quarter: 2017Q4

REPORT INFORMATION
  Report Type: Report from Study
  Country: US (occurrence: US)
  Receive Date: 20171012
  Receipt Date: 20171027
  Transmission Date: 20180321
  Serious: Yes (Hospitalization, Other)
  Sender: FDA-Public Use
  Company Number: US-JNJFOC-20161004490

PATIENT
  Age: 74 Year
  Sex: Female
  Weight: 73.94 kg

DRUGS (4)
  1. DARZALEX [Suspect]
     Active Substance: DARATUMUMAB
     Indication: PLASMA CELL MYELOMA
     Route: 042
     Dates: start: 20160307, end: 20160912
  2. POMALYST [Suspect]
     Active Substance: POMALIDOMIDE
     Indication: PRODUCT USED FOR UNKNOWN INDICATION
     Dosage: START DATE REPORTED AS: 20-AUG-2017
     Route: 065
     Dates: end: 201610
  3. WARFARIN [Concomitant]
     Active Substance: WARFARIN
     Indication: CEREBROVASCULAR ACCIDENT PROPHYLAXIS
     Route: 048
     Dates: start: 2015, end: 2017
  4. ACYCLOVIR. [Concomitant]
     Active Substance: ACYCLOVIR
     Indication: ANTIVIRAL PROPHYLAXIS
     Route: 048
     Dates: start: 201211

REACTIONS (8)
  - White blood cell count decreased [Recovered/Resolved]
  - Feeling abnormal [Unknown]
  - Off label use [Not Recovered/Not Resolved]
  - Heart rate decreased [Unknown]
  - Nonspecific reaction [Unknown]
  - Sinus node dysfunction [Unknown]
  - Platelet count decreased [Recovered/Resolved]
  - Plasma cell myeloma [Recovered/Resolved]

NARRATIVE: CASE EVENT DATE: 20160820
